FAERS Safety Report 23728241 (Version 1)
Quarter: 2024Q2

REPORT INFORMATION
  Report Type: Report from Study
  Country: IT (occurrence: IT)
  Receive Date: 20240410
  Receipt Date: 20240410
  Transmission Date: 20240716
  Serious: Yes (Hospitalization)
  Sender: FDA-Public Use
  Company Number: IT-AMGEN-ITANI2024065626

PATIENT
  Age: 34 Year
  Sex: Male

DRUGS (1)
  1. BLINATUMOMAB [Suspect]
     Active Substance: BLINATUMOMAB
     Indication: Acute lymphocytic leukaemia
     Dosage: 9 MICROGRAM, QD, AS A CONTINOUS INFUSION
     Route: 042
     Dates: start: 20240312

REACTIONS (4)
  - Electroencephalogram abnormal [Recovering/Resolving]
  - Petit mal epilepsy [Recovering/Resolving]
  - Neurotoxicity [Recovering/Resolving]
  - Sopor [Recovering/Resolving]

NARRATIVE: CASE EVENT DATE: 20240313
